FAERS Safety Report 5229489-5 (Version None)
Quarter: 2007Q1

REPORT INFORMATION
  Report Type: 
  Country: None (occurrence: None)
  Receive Date: 20061201
  Receipt Date: 20060912
  Transmission Date: 20070707
  Serious: No
  Sender: FDA-Public Use
  Company Number: 2006PV021152

PATIENT
  Age: 56 Year
  Sex: Female
  Weight: 106.5953 kg

DRUGS (4)
  1. BYETTA [Suspect]
     Indication: DIABETES MELLITUS NON-INSULIN-DEPENDENT
     Dosage: 5 MCG;BID;SC
     Route: 058
     Dates: start: 20060909
  2. METFORMIN HCL [Concomitant]
  3. VIVELLE [Concomitant]
  4. AVANDIA [Concomitant]

REACTIONS (9)
  - ABDOMINAL PAIN UPPER [None]
  - ASTHENIA [None]
  - DECREASED APPETITE [None]
  - DIARRHOEA [None]
  - FATIGUE [None]
  - FEELING ABNORMAL [None]
  - HYPERHIDROSIS [None]
  - NAUSEA [None]
  - SLUGGISHNESS [None]
